FAERS Safety Report 5675574-3 (Version None)
Quarter: 2008Q1

REPORT INFORMATION
  Report Type: 
  Country: None (occurrence: None)
  Receive Date: 20080321
  Receipt Date: 20080314
  Transmission Date: 20080703
  Serious: Yes (Other)
  Sender: FDA-Public Use
  Company Number: US-JNJFOC-20080304333

PATIENT
  Sex: Female
  Weight: 74.84 kg

DRUGS (1)
  1. LEVAQUIN [Suspect]
     Indication: DIVERTICULITIS
     Route: 048
     Dates: start: 20080308, end: 20080308

REACTIONS (2)
  - CHEST PAIN [None]
  - TOOTHACHE [None]
